FAERS Safety Report 19771377 (Version 2)
Quarter: 2021Q3

REPORT INFORMATION
  Report Type: Spontaneous
  Country: JP (occurrence: JP)
  Receive Date: 20210831
  Receipt Date: 20210831
  Transmission Date: 20211014
  Serious: Yes (Hospitalization, Other)
  Sender: FDA-Public Use
  Company Number: JP-ALLERGAN-2130644US

PATIENT
  Sex: Male
  Weight: 36 kg

DRUGS (1)
  1. MESALAZINE UNK [Suspect]
     Active Substance: MESALAMINE
     Indication: COLITIS ULCERATIVE
     Dosage: 100 MG/KG/DAY

REACTIONS (3)
  - Pulmonary toxicity [Recovering/Resolving]
  - Off label use [Unknown]
  - Interstitial lung disease [Recovering/Resolving]
